FAERS Safety Report 6917376-3 (Version None)
Quarter: 2010Q3

REPORT INFORMATION
  Report Type: 
  Country: None (occurrence: None)
  Receive Date: 20100805
  Receipt Date: 20100727
  Transmission Date: 20110219
  Serious: Yes (Other)
  Sender: FDA-Public Use
  Company Number: DSM-2010-01095

PATIENT
  Age: 81 Year
  Sex: Female

DRUGS (1)
  1. CAPENON (OLMESARTAN MEDOXOMIL, AMLODIPINE BESILATE) (TABLET) (OLMESART [Suspect]
     Indication: HYPERTENSION
     Dosage: 5/20 MG (1 IN 1 D), ORAL
     Route: 048
     Dates: start: 20100118

REACTIONS (2)
  - DECREASED APPETITE [None]
  - DEPRESSED MOOD [None]
